FAERS Safety Report 5402160-2 (Version None)
Quarter: 2007Q3

REPORT INFORMATION
  Report Type: 
  Country: None (occurrence: None)
  Receive Date: 20070801
  Receipt Date: 20070717
  Transmission Date: 20080115
  Serious: Yes (Hospitalization)
  Sender: FDA-Public Use
  Company Number: NL-ELI_LILLY_AND_COMPANY-NL200707000907

PATIENT
  Age: 80 Year
  Sex: Female

DRUGS (8)
  1. CYMBALTA [Suspect]
     Indication: HYPERCHOLESTEROLAEMIA
     Dosage: 30 MG, DAILY (1/D)
     Dates: start: 20070516, end: 20070601
  2. SIMVASTATINE A [Concomitant]
     Indication: HYPERCHOLESTEROLAEMIA
     Dosage: 40 MG, DAILY (1/D)
     Dates: start: 20020319
  3. VERAPAMIL [Concomitant]
     Dosage: 80 MG, 3/D
     Dates: start: 20060701
  4. LANOXIN [Concomitant]
     Dosage: 125 UG, DAILY (1/D)
     Dates: start: 20051014
  5. FUROSEMIDE [Concomitant]
     Dosage: 40 MG, DAILY (1/D)
     Dates: start: 20050926
  6. METOPROLOL SUCCINATE [Concomitant]
     Dosage: 100 MG, DAILY (1/D)
     Dates: start: 20051014, end: 20070601
  7. OMEPRAZOLE [Concomitant]
     Dosage: 10 MG, AS NEEDED
     Dates: start: 19991213
  8. ACCUPRIL [Concomitant]
     Dosage: 5 MG, DAILY (1/D)
     Dates: start: 19990422

REACTIONS (1)
  - JAUNDICE [None]
